FAERS Safety Report 7585076-5 (Version None)
Quarter: 2011Q2

REPORT INFORMATION
  Report Type: 
  Country: None (occurrence: None)
  Receive Date: 20110630
  Receipt Date: 20110621
  Transmission Date: 20111010
  Serious: Yes (Death)
  Sender: FDA-Public Use
  Company Number: JP-GILEAD-E2B_00001338

PATIENT
  Sex: Female
  Weight: 75 kg

DRUGS (8)
  1. HEPSERA [Suspect]
     Indication: HEPATITIS B
     Route: 048
     Dates: start: 20101222, end: 20110126
  2. ZEFIX [Concomitant]
     Indication: HEPATITIS B
     Dosage: 100MG PER DAY
     Route: 048
     Dates: start: 20051019, end: 20110503
  3. LIVACT [Concomitant]
     Indication: HEPATITIS B
     Route: 048
     Dates: start: 20040223, end: 20110509
  4. URSO 250 [Concomitant]
     Indication: HEPATITIS B
     Route: 048
     Dates: start: 20040223, end: 20110509
  5. THYRADIN [Concomitant]
     Indication: HYPOTHYROIDISM
     Route: 048
     Dates: start: 20081118
  6. STRONGER NEO MINOPHAGEN C [Concomitant]
     Route: 042
  7. ROCALTROL [Concomitant]
     Indication: OSTEOPOROSIS
     Route: 048
     Dates: start: 20050713, end: 20110401
  8. FAMOTIDINE [Concomitant]
     Indication: GASTRITIS
     Route: 048
     Dates: start: 20040223

REACTIONS (2)
  - HEPATITIS [None]
  - HEPATIC FAILURE [None]
